FAERS Safety Report 5830298-4 (Version None)
Quarter: 2008Q3

REPORT INFORMATION
  Report Type: 
  Country: None (occurrence: None)
  Receive Date: 20080801
  Receipt Date: 20080724
  Transmission Date: 20090109
  Serious: Yes (Hospitalization)
  Sender: FDA-Public Use
  Company Number: CN-JNJFOC-20080706070

PATIENT
  Age: 21 Year
  Sex: Male

DRUGS (1)
  1. RISPERIDONE CONSTA [Suspect]
     Indication: SCHIZOPHRENIA
     Route: 030

REACTIONS (2)
  - PNEUMONIA [None]
  - RESPIRATORY FAILURE [None]
